FAERS Safety Report 10779398 (Version 1)
Quarter: 2015Q1

REPORT INFORMATION
  Report Type: Spontaneous
  Country: US (occurrence: None)
  Receive Date: 20150206
  Receipt Date: 20150206
  Transmission Date: 20150721
  Serious: Yes (Disabling)
  Sender: FDA-Public Use
  Company Number: None

PATIENT
  Age: 68 Year
  Sex: Male
  Weight: 62.6 kg

DRUGS (1)
  1. SEROQUEL XR [Suspect]
     Active Substance: QUETIAPINE FUMARATE
     Indication: DEPRESSION
     Dosage: 1 PILL QHS/BEDTIME ORAL
     Route: 048
     Dates: start: 20121201, end: 20130517

REACTIONS (7)
  - Pollakiuria [None]
  - Mental impairment [None]
  - Body temperature fluctuation [None]
  - Cognitive disorder [None]
  - Sleep disorder [None]
  - Decreased appetite [None]
  - Constipation [None]

NARRATIVE: CASE EVENT DATE: 20130501
